FAERS Safety Report 10806930 (Version 1)
Quarter: 2015Q1

REPORT INFORMATION
  Report Type: Report from Study
  Country: US (occurrence: US)
  Receive Date: 20150217
  Receipt Date: 20150217
  Transmission Date: 20150721
  Serious: No
  Sender: FDA-Public Use
  Company Number: US-ABBVIE-14K-163-1255400-00

PATIENT
  Age: 21 Year
  Sex: Male

DRUGS (6)
  1. PREDNISONE. [Concomitant]
     Active Substance: PREDNISONE
     Dates: start: 20140625
  2. PREDNISONE. [Concomitant]
     Active Substance: PREDNISONE
     Indication: PRODUCT USED FOR UNKNOWN INDICATION
     Dosage: DAY 1-3
  3. HUMIRA [Suspect]
     Active Substance: ADALIMUMAB
     Indication: ANKYLOSING SPONDYLITIS
     Dates: start: 201402
  4. PREDNISONE. [Concomitant]
     Active Substance: PREDNISONE
     Dosage: DAY 9-11
  5. PREDNISONE. [Concomitant]
     Active Substance: PREDNISONE
     Dosage: DAY 12-14
  6. PREDNISONE. [Concomitant]
     Active Substance: PREDNISONE
     Dosage: DAY 4-8

REACTIONS (2)
  - Arthropathy [Not Recovered/Not Resolved]
  - Ankylosing spondylitis [Not Recovered/Not Resolved]

NARRATIVE: CASE EVENT DATE: 201402
